FAERS Safety Report 23552976 (Version 1)
Quarter: 2024Q1

REPORT INFORMATION
  Report Type: Spontaneous
  Country: JP (occurrence: JP)
  Receive Date: 20240222
  Receipt Date: 20240222
  Transmission Date: 20240409
  Serious: Yes (Hospitalization)
  Sender: FDA-Public Use
  Company Number: JP-MYE-2024M1015394AA

PATIENT
  Age: 87 Year
  Sex: Female

DRUGS (5)
  1. AMLODIPINE [Suspect]
     Active Substance: AMLODIPINE BESYLATE
     Indication: Hypertension
     Dosage: 5 MILLIGRAM, QD
     Route: 048
     Dates: end: 20231125
  2. ARICEPT [Suspect]
     Active Substance: DONEPEZIL HYDROCHLORIDE
     Indication: Dementia
     Dosage: 10 MILLIGRAM, QD
     Route: 048
     Dates: end: 20231125
  3. MEMANTINE HYDROCHLORIDE [Concomitant]
     Active Substance: MEMANTINE HYDROCHLORIDE
     Indication: Product used for unknown indication
     Dosage: 1 DOSAGE FORM, QD, AFTER DINNER
     Route: 048
     Dates: end: 20231130
  4. LEVETIRACETAM [Concomitant]
     Active Substance: LEVETIRACETAM
     Indication: Product used for unknown indication
     Dosage: 2.0 DOSAGE FORM (1 DOSAGE FORM, 1 IN 12 HOUR), AFTER BREAKFAST AND DINNER
     Route: 048
  5. ALITHIA [Concomitant]
     Indication: Product used for unknown indication
     Dosage: 3.0 DOSAGE FORM (1 DOSAGE FORM, 1 IN 8 HOUR), AFTER EVERY MEAL
     Route: 048

REACTIONS (1)
  - Atrioventricular block complete [Recovering/Resolving]

NARRATIVE: CASE EVENT DATE: 20231124
